FAERS Safety Report 5355601-3 (Version None)
Quarter: 2007Q2

REPORT INFORMATION
  Report Type: 
  Country: None (occurrence: None)
  Receive Date: 20070613
  Receipt Date: 20070611
  Transmission Date: 20071010
  Serious: Yes (Disabling)
  Sender: FDA-Public Use
  Company Number: A0655075A

PATIENT
  Age: 83 Year
  Sex: Female

DRUGS (7)
  1. TYKERB [Suspect]
     Indication: BREAST CANCER
     Dosage: 1250MG PER DAY
     Route: 048
     Dates: start: 20070514
  2. AMIODARONE HCL [Concomitant]
  3. LEVOTHYROXINE SODIUM [Concomitant]
  4. GLUCOPHAGE [Concomitant]
  5. GLYBURIDE [Concomitant]
  6. AVAPRO [Concomitant]
  7. DEMECLOCYCLINE [Concomitant]

REACTIONS (5)
  - ASTHENIA [None]
  - NAUSEA [None]
  - PERFORMANCE STATUS DECREASED [None]
  - RASH [None]
  - TREMOR [None]
